FAERS Safety Report 10170434 (Version 1)
Quarter: 2014Q2

REPORT INFORMATION
  Report Type: Spontaneous
  Country: CN (occurrence: CN)
  Receive Date: 20140513
  Receipt Date: 20140513
  Transmission Date: 20141212
  Serious: Yes (Life-Threatening)
  Sender: FDA-Public Use
  Company Number: CN-BAXTER-2014BAX023164

PATIENT
  Age: 12 Month
  Sex: Male
  Weight: 10.5 kg

DRUGS (1)
  1. 5% GLUCOSE  INJECTION [Suspect]
     Indication: MEDICATION DILUTION
     Route: 041
     Dates: start: 20131205, end: 20131205

REACTIONS (2)
  - Pyrexia [Recovered/Resolved]
  - Chills [Recovered/Resolved]
